FAERS Safety Report 7945323-4 (Version None)
Quarter: 2011Q4

REPORT INFORMATION
  Report Type: 
  Country: None (occurrence: None)
  Receive Date: 20111129
  Receipt Date: 20110215
  Transmission Date: 20120403
  Serious: No
  Sender: FDA-Public Use
  Company Number: US-GLAXOSMITHKLINE-A0913795A

PATIENT
  Age: 38 Year
  Sex: Female

DRUGS (2)
  1. YAZ [Concomitant]
  2. BUPROPION HYDROCHLORIDE [Suspect]
     Indication: DEPRESSION
     Dosage: 1TAB TWICE PER DAY
     Route: 048
     Dates: start: 20100801, end: 20101001

REACTIONS (2)
  - HEADACHE [None]
  - TINNITUS [None]
